FAERS Safety Report 5626133-X (Version None)
Quarter: 2008Q1

REPORT INFORMATION
  Report Type: 
  Country: None (occurrence: None)
  Receive Date: 20080214
  Receipt Date: 20080201
  Transmission Date: 20080703
  Serious: Yes (Hospitalization)
  Sender: FDA-Public Use
  Company Number: JP-AMGEN-US263666

PATIENT
  Sex: Male
  Weight: 50 kg

DRUGS (2)
  1. KINERET [Suspect]
     Indication: DRUG USE FOR UNKNOWN INDICATION
     Route: 058
     Dates: start: 20071113, end: 20080131
  2. METHOTREXATE [Concomitant]
     Route: 065
     Dates: start: 20080110

REACTIONS (7)
  - ANAPHYLACTIC REACTION [None]
  - CONJUNCTIVAL HYPERAEMIA [None]
  - DYSPNOEA [None]
  - INJECTION SITE PAIN [None]
  - MALAISE [None]
  - RHINORRHOEA [None]
  - URTICARIA [None]
